FAERS Safety Report 4436691-9 (Version None)
Quarter: 2004Q3

REPORT INFORMATION
  Report Type: 
  Country: None (occurrence: None)
  Receive Date: 20040827
  Receipt Date: 20040827
  Transmission Date: 20050211
  Serious: Yes (Hospitalization)
  Sender: FDA-Public Use
  Company Number: None

PATIENT
  Age: 94 Year
  Sex: Female

DRUGS (1)
  1. INSULIN [Suspect]

REACTIONS (3)
  - ACCIDENTAL OVERDOSE [None]
  - BLOOD PRESSURE DIASTOLIC DECREASED [None]
  - HYPOGLYCAEMIA [None]
